FAERS Safety Report 5736202-1 (Version None)
Quarter: 2008Q2

REPORT INFORMATION
  Report Type: 
  Country: None (occurrence: None)
  Receive Date: 20080509
  Receipt Date: 20080509
  Transmission Date: 20081010
  Serious: No
  Sender: FDA-Public Use
  Company Number: None

PATIENT
  Age: 32 Year
  Sex: Male
  Weight: 77.1115 kg

DRUGS (2)
  1. CREST PRO HEALTH RINSE CREST [Suspect]
     Indication: BREATH ODOUR
     Dosage: 1 OZ. DAY AND NIGHT DENTAL TWICE A DAY
     Route: 004
     Dates: start: 20071001, end: 20080507
  2. CREST PRO HEALTH RINSE CREST [Suspect]
     Indication: GINGIVITIS
     Dosage: 1 OZ. DAY AND NIGHT DENTAL TWICE A DAY
     Route: 004
     Dates: start: 20071001, end: 20080507

REACTIONS (1)
  - TOOTH DISCOLOURATION [None]
